FAERS Safety Report 12387026 (Version 20)
Quarter: 2017Q2

REPORT INFORMATION
  Report Type: Report from Study
  Country: CA (occurrence: CA)
  Receive Date: 20160519
  Receipt Date: 20170428
  Transmission Date: 20170830
  Serious: Yes (Other)
  Sender: FDA-Public Use
  Company Number: CA-SA-2016SA072818

PATIENT
  Age: 28 Year
  Sex: Female

DRUGS (9)
  1. ACYCLOVIR. [Suspect]
     Active Substance: ACYCLOVIR
     Indication: PREMEDICATION
     Route: 048
     Dates: start: 20160404, end: 20160506
  2. DEPO-PROVERA [Suspect]
     Active Substance: MEDROXYPROGESTERONE ACETATE
     Route: 065
  3. RANITIDINE. [Concomitant]
     Active Substance: RANITIDINE
     Indication: PREMEDICATION
     Route: 048
     Dates: start: 20160404, end: 20160408
  4. TYLENOL [Concomitant]
     Active Substance: ACETAMINOPHEN
     Indication: PREMEDICATION
     Route: 048
     Dates: start: 20160404
  5. BENADRYL [Concomitant]
     Active Substance: DIPHENHYDRAMINE HYDROCHLORIDE
     Indication: PREMEDICATION
     Route: 048
     Dates: start: 20160404
  6. LEMTRADA [Suspect]
     Active Substance: ALEMTUZUMAB
     Indication: RELAPSING-REMITTING MULTIPLE SCLEROSIS
     Route: 041
     Dates: start: 20160404, end: 20160408
  7. GRAVOL [Concomitant]
     Active Substance: DIMENHYDRINATE
     Indication: PREMEDICATION
     Route: 048
     Dates: start: 20160404, end: 20160408
  8. METHYLPREDNISOLONE. [Concomitant]
     Active Substance: METHYLPREDNISOLONE
     Indication: PREMEDICATION
     Route: 042
     Dates: start: 20160404, end: 20160406
  9. DEPO-PROVERA [Concomitant]
     Active Substance: MEDROXYPROGESTERONE ACETATE
     Indication: CONTRACEPTION

REACTIONS (49)
  - Multiple sclerosis relapse [Unknown]
  - Urine ketone body present [Recovered/Resolved]
  - Red cell distribution width increased [Recovered/Resolved]
  - Red blood cells urine positive [Recovered/Resolved]
  - Balance disorder [Not Recovered/Not Resolved]
  - Blood urine present [Recovered/Resolved]
  - Erythema [Recovered/Resolved]
  - Arthralgia [Recovered/Resolved]
  - Urticaria [Recovered/Resolved]
  - Fatigue [Not Recovered/Not Resolved]
  - White blood cell count decreased [Not Recovered/Not Resolved]
  - Pollakiuria [Not Recovered/Not Resolved]
  - Neutrophil count decreased [Not Recovered/Not Resolved]
  - Haemoglobin decreased [Recovered/Resolved]
  - Increased appetite [Not Recovered/Not Resolved]
  - Pruritus [Recovered/Resolved]
  - Neutropenia [Not Recovered/Not Resolved]
  - Urine leukocyte esterase [Not Recovered/Not Resolved]
  - Haematocrit decreased [Recovered/Resolved]
  - Urine abnormality [Not Recovered/Not Resolved]
  - Urine analysis abnormal [Not Recovered/Not Resolved]
  - Feeling cold [Recovered/Resolved]
  - Lymphocyte count decreased [Recovered/Resolved]
  - Chills [Recovered/Resolved]
  - Tremor [Recovered/Resolved]
  - Bacterial test [Not Recovered/Not Resolved]
  - Menstruation irregular [Recovered/Resolved]
  - Body temperature increased [Recovered/Resolved]
  - Rash pruritic [Recovered/Resolved]
  - Infusion site pain [Recovered/Resolved]
  - Crystalluria [Unknown]
  - Urinary sediment present [Not Recovered/Not Resolved]
  - Red blood cell count decreased [Recovered/Resolved]
  - Back pain [Recovered/Resolved]
  - Protein urine present [Recovered/Resolved]
  - Throat irritation [Recovered/Resolved]
  - Sneezing [Recovered/Resolved]
  - Burns second degree [Recovering/Resolving]
  - Rash [Recovering/Resolving]
  - Infusion site erythema [Recovered/Resolved]
  - Pain [Recovered/Resolved]
  - Leukopenia [Not Recovered/Not Resolved]
  - Nitrite urine present [Recovered/Resolved]
  - White blood cells urine positive [Not Recovered/Not Resolved]
  - Monocyte count decreased [Recovered/Resolved]
  - Ear pruritus [Recovered/Resolved]
  - Headache [Recovered/Resolved]
  - Insomnia [Recovered/Resolved]
  - Viral upper respiratory tract infection [Recovered/Resolved]

NARRATIVE: CASE EVENT DATE: 20160404
